FAERS Safety Report 9853889 (Version 6)
Quarter: 2017Q4

REPORT INFORMATION
  Report Type: Spontaneous
  Country: US (occurrence: US)
  Receive Date: 20140129
  Receipt Date: 20171012
  Transmission Date: 20180321
  Serious: Yes (Death, Hospitalization, Disabling, Other)
  Sender: FDA-Public Use
  Company Number: US-009507513-1401USA011271

PATIENT
  Sex: Female

DRUGS (3)
  1. ACTONEL [Suspect]
     Active Substance: RISEDRONATE SODIUM
     Indication: OSTEOPOROSIS
     Dosage: 35 MG, QW
     Route: 048
     Dates: start: 200803, end: 200807
  2. FOSAMAX [Suspect]
     Active Substance: ALENDRONATE SODIUM
     Indication: OSTEOPOROSIS
     Dosage: 70 MG, QW
     Route: 048
     Dates: start: 2000, end: 200802
  3. ALENDRONATE SODIUM. [Suspect]
     Active Substance: ALENDRONATE SODIUM
     Indication: OSTEOPOROSIS
     Dosage: 70 MG, QW
     Route: 048
     Dates: start: 20080702, end: 20110613

REACTIONS (29)
  - Femur fracture [Unknown]
  - Humerus fracture [Recovered/Resolved]
  - Back injury [Unknown]
  - Chronic obstructive pulmonary disease [Fatal]
  - Lung carcinoma cell type unspecified stage IV [Fatal]
  - Radius fracture [Unknown]
  - Tendonitis [Unknown]
  - Hypertrophy [Unknown]
  - Skin cancer [Unknown]
  - Osteoporosis [Unknown]
  - Patella fracture [Unknown]
  - Hypertension [Fatal]
  - Femur fracture [Recovering/Resolving]
  - Tooth disorder [Unknown]
  - Injury [Unknown]
  - Type 2 diabetes mellitus [Fatal]
  - Sciatica [Unknown]
  - Chronic kidney disease [Fatal]
  - Hypertension [Unknown]
  - Deformity [Unknown]
  - Haemarthrosis [Unknown]
  - Fall [Unknown]
  - Fall [Unknown]
  - Fall [Unknown]
  - Ludwig angina [Unknown]
  - Spinal column stenosis [Unknown]
  - Osteonecrosis [Unknown]
  - Hyperlipidaemia [Unknown]
  - Back pain [Unknown]

NARRATIVE: CASE EVENT DATE: 2000
